FAERS Safety Report 10723870 (Version 1)
Quarter: 2015Q1

REPORT INFORMATION
  Report Type: Spontaneous
  Country: US (occurrence: None)
  Receive Date: 20150115
  Receipt Date: 20150115
  Transmission Date: 20150721
  Serious: Yes (Life-Threatening)
  Sender: FDA-Public Use
  Company Number: 15-001

PATIENT
  Age: 3 Year
  Sex: Male
  Weight: 15.42 kg

DRUGS (1)
  1. CHESTAL HONEY 8.45OZ [Suspect]
     Active Substance: HOMEOPATHICS
     Indication: COUGH
     Dosage: 1 DOSE OF 5 ML
     Dates: start: 20141226

REACTIONS (1)
  - Anaphylactic shock [None]

NARRATIVE: CASE EVENT DATE: 20141226
